FAERS Safety Report 21232904 (Version 1)
Quarter: 2022Q3

REPORT INFORMATION
  Report Type: Spontaneous
  Country: US (occurrence: US)
  Receive Date: 20220819
  Receipt Date: 20220819
  Transmission Date: 20221026
  Serious: Yes (Other)
  Sender: FDA-Public Use
  Company Number: US-PFIZER INC-202201067998

PATIENT
  Age: 48 Year
  Sex: Female

DRUGS (1)
  1. BOSULIF [Suspect]
     Active Substance: BOSUTINIB MONOHYDRATE
     Dosage: 400 MG, DAILY
     Route: 048

REACTIONS (12)
  - Diverticulitis [Unknown]
  - Diarrhoea [Unknown]
  - Neoplasm progression [Unknown]
  - Malaise [Unknown]
  - Nausea [Unknown]
  - Vomiting [Unknown]
  - Rash [Unknown]
  - Urticaria [Unknown]
  - Abdominal pain lower [Unknown]
  - Ovarian cyst [Unknown]
  - Confusional state [Unknown]
  - Pain [Not Recovered/Not Resolved]
